FAERS Safety Report 7798872-6 (Version None)
Quarter: 2011Q4

REPORT INFORMATION
  Report Type: 
  Country: None (occurrence: None)
  Receive Date: 20111006
  Receipt Date: 20110927
  Transmission Date: 20120403
  Serious: Yes (Other)
  Sender: FDA-Public Use
  Company Number: JP-JNJFOC-20110909637

PATIENT
  Age: 38 Year
  Sex: Female

DRUGS (2)
  1. RISPERDAL [Suspect]
     Indication: SCHIZOPHRENIA
     Route: 048
  2. AKITENON [Concomitant]
     Route: 048

REACTIONS (1)
  - PULMONARY THROMBOSIS [None]
